FAERS Safety Report 14551297 (Version 1)
Quarter: 2018Q1

REPORT INFORMATION
  Report Type: Spontaneous
  Country: US (occurrence: US)
  Receive Date: 20180220
  Receipt Date: 20180220
  Transmission Date: 20180509
  Serious: No
  Sender: FDA-Public Use
  Company Number: US-TEVA-770584USA

PATIENT
  Sex: Female

DRUGS (12)
  1. PENTASA PEFLID AC [Concomitant]
  2. LORATADINE. [Concomitant]
     Active Substance: LORATADINE
  3. TAMOXIFEN [Suspect]
     Active Substance: TAMOXIFEN
     Indication: INTRADUCTAL PROLIFERATIVE BREAST LESION
     Route: 065
     Dates: start: 201609, end: 201610
  4. MAG OX [Concomitant]
     Active Substance: MAGNESIUM OXIDE
  5. LUNESTA [Concomitant]
     Active Substance: ESZOPICLONE
     Dosage: PRN
  6. PLAQUENIL [Concomitant]
     Active Substance: HYDROXYCHLOROQUINE SULFATE
  7. PROMETHAZINE [Concomitant]
     Active Substance: PROMETHAZINE\PROMETHAZINE HYDROCHLORIDE
     Dosage: PRN
  8. CLONIDINE. [Concomitant]
     Active Substance: CLONIDINE
  9. HYDROCODONE [Concomitant]
     Active Substance: HYDROCODONE
     Dosage: PRN
  10. SPIRONOLACTONE. [Concomitant]
     Active Substance: SPIRONOLACTONE
  11. VITAMIN D [Concomitant]
     Active Substance: CHOLECALCIFEROL
  12. FLINTSTONE COMPLETE VITAMIN [Concomitant]

REACTIONS (6)
  - Sleep disorder [Unknown]
  - Insomnia [Unknown]
  - Loss of personal independence in daily activities [Unknown]
  - Arthropathy [Unknown]
  - Headache [Unknown]
  - Cough [Unknown]
